FAERS Safety Report 23568029 (Version 2)
Quarter: 2025Q3

REPORT INFORMATION
  Report Type: Spontaneous
  Country: US (occurrence: US)
  Receive Date: 20240226
  Receipt Date: 20250701
  Transmission Date: 20251020
  Serious: No
  Sender: SANOFI AVENTIS
  Company Number: US-SA-SAC20240221000396

PATIENT
  Age: 57 Year
  Sex: Female

DRUGS (4)
  1. KEVZARA [Suspect]
     Active Substance: SARILUMAB
     Indication: Polymyalgia rheumatica
     Dosage: 200 MG, QOW
     Route: 058
     Dates: start: 202308
  2. KEVZARA [Suspect]
     Active Substance: SARILUMAB
     Indication: Polyarthritis
  3. DICLOFENAC [Concomitant]
     Active Substance: DICLOFENAC
     Dates: start: 202402
  4. ETODOLAC [Concomitant]
     Active Substance: ETODOLAC

REACTIONS (7)
  - Injection site bruising [Not Recovered/Not Resolved]
  - Injection site urticaria [Recovered/Resolved]
  - Arthralgia [Unknown]
  - Injection site pain [Unknown]
  - Injection site pruritus [Not Recovered/Not Resolved]
  - Injection site swelling [Recovered/Resolved]
  - Product use in unapproved indication [Unknown]

NARRATIVE: CASE EVENT DATE: 20230801
